FAERS Safety Report 7627637-0 (Version None)
Quarter: 2011Q3

REPORT INFORMATION
  Report Type: 
  Country: None (occurrence: None)
  Receive Date: 20110713
  Receipt Date: 20110628
  Transmission Date: 20111222
  Serious: Yes (Hospitalization)
  Sender: FDA-Public Use
  Company Number: TCI2011A03651

PATIENT
  Age: 77 Year
  Sex: Male

DRUGS (6)
  1. ECARD (CANDESARTAN CILEXETIL, HYDROCHLOROTHIAZIDE) [Concomitant]
  2. ADONA (CARBAZOCHROME SODIUM SULFONATE) [Concomitant]
  3. VITAMEDIN (PYRIDOXINE HYDROCHLORIDE, CYANOCOBALAMIN, BENFOTIAMINE) [Concomitant]
  4. FOIPAN (CAMOSTAT MESILATE) [Concomitant]
  5. ACTOS [Suspect]
     Indication: DIABETES MELLITUS
     Dosage: 15 MG (15 MG, 1 IN 1 D), PER ORAL
     Route: 048
     Dates: start: 20080219
  6. NIFEDIPINE [Concomitant]

REACTIONS (2)
  - BLADDER CANCER [None]
  - HAEMATURIA [None]
